FAERS Safety Report 6470858-3 (Version None)
Quarter: 2009Q4

REPORT INFORMATION
  Report Type: 
  Country: None (occurrence: None)
  Receive Date: 20091203
  Receipt Date: 20080109
  Transmission Date: 20100525
  Serious: Yes (Hospitalization)
  Sender: FDA-Public Use
  Company Number: US-ELI_LILLY_AND_COMPANY-US200801001685

PATIENT
  Sex: Female
  Weight: 136.5 kg

DRUGS (10)
  1. BYETTA [Suspect]
     Indication: TYPE 2 DIABETES MELLITUS
     Dosage: 5 UG, 2/D
     Route: 058
     Dates: start: 20060101, end: 20060101
  2. BYETTA [Suspect]
     Dosage: 10 UG, 2/D
     Route: 058
     Dates: start: 20060101
  3. CYMBALTA [Concomitant]
     Indication: NEUROPATHY PERIPHERAL
     Dosage: UNK, UNKNOWN
     Route: 048
  4. METFORMIN HCL [Concomitant]
     Indication: TYPE 2 DIABETES MELLITUS
     Dosage: UNK, UNKNOWN
     Route: 048
     Dates: start: 20060101
  5. TOPAMAX [Concomitant]
     Indication: NEUROPATHY PERIPHERAL
     Dosage: UNK, UNKNOWN
     Route: 048
  6. LISINOPRIL [Concomitant]
     Indication: PROPHYLAXIS
     Dosage: UNK, UNKNOWN
     Route: 048
  7. FUROSEMIDE [Concomitant]
     Indication: FLUID RETENTION
     Dosage: UNK, UNKNOWN
     Route: 048
     Dates: end: 20070601
  8. FUROSEMIDE [Concomitant]
     Dosage: UNK, UNKNOWN
     Route: 048
     Dates: start: 20070601
  9. HYDROCHLOROTHIAZIDE [Concomitant]
     Indication: FLUID RETENTION
     Dosage: UNK, UNKNOWN
     Route: 048
  10. SPIRONOLACTONE [Concomitant]
     Indication: FLUID RETENTION
     Dosage: UNK, UNKNOWN
     Route: 048
     Dates: start: 20070601

REACTIONS (11)
  - BLOOD GLUCOSE INCREASED [None]
  - DECREASED APPETITE [None]
  - FLUID RETENTION [None]
  - GASTROENTERITIS VIRAL [None]
  - INJURY ASSOCIATED WITH DEVICE [None]
  - KIDNEY INFECTION [None]
  - NAUSEA [None]
  - PUNCTURE SITE HAEMORRHAGE [None]
  - SLUGGISHNESS [None]
  - VOMITING [None]
  - WEIGHT DECREASED [None]
